FAERS Safety Report 18631429 (Version 1)
Quarter: 2020Q4

REPORT INFORMATION
  Report Type: Spontaneous
  Country: US (occurrence: US)
  Receive Date: 20201217
  Receipt Date: 20201217
  Transmission Date: 20210114
  Serious: No
  Sender: FDA-Public Use
  Company Number: US-ENDO PHARMACEUTICALS INC-2020-001743

PATIENT
  Sex: Male

DRUGS (2)
  1. XIAFLEX [Suspect]
     Active Substance: COLLAGENASE CLOSTRIDIUM HISTOLYTICUM
     Dosage: UNK UNKNOWN, CYCLE 2, INJECTIONS 1 AND 2
     Route: 065
  2. XIAFLEX [Suspect]
     Active Substance: COLLAGENASE CLOSTRIDIUM HISTOLYTICUM
     Indication: PEYRONIE^S DISEASE
     Dosage: UNK UNKNOWN, CYCLE 1, INJECTIONS 1 AND 2
     Route: 065

REACTIONS (5)
  - Penile swelling [Recovered/Resolved]
  - Nasopharyngitis [Unknown]
  - Genital swelling [Recovered/Resolved]
  - Genital contusion [Recovered/Resolved]
  - Penile contusion [Recovered/Resolved]

NARRATIVE: CASE EVENT DATE: 2020
